FAERS Safety Report 11046254 (Version 1)
Quarter: 2015Q2

REPORT INFORMATION
  Report Type: Report from Study
  Country: BR (occurrence: BR)
  Receive Date: 20150418
  Receipt Date: 20150418
  Transmission Date: 20150821
  Serious: Yes (Other)
  Sender: FDA-Public Use
  Company Number: PHHY2015BR043376

PATIENT
  Sex: Female

DRUGS (2)
  1. EXELON PATCH [Suspect]
     Active Substance: RIVASTIGMINE
     Indication: DEMENTIA
     Dosage: PATCH 10 (CM2)
     Route: 062
     Dates: start: 201411
  2. EXELON PATCH [Suspect]
     Active Substance: RIVASTIGMINE
     Indication: PARKINSON^S DISEASE
     Dosage: PATCH 5 (CM2)
     Dates: start: 201408, end: 201410

REACTIONS (3)
  - Nervousness [Recovering/Resolving]
  - Cataract [Recovering/Resolving]
  - Memory impairment [Recovering/Resolving]
